FAERS Safety Report 24585431 (Version 1)
Quarter: 2024Q4

REPORT INFORMATION
  Report Type: Report from Study
  Country: US (occurrence: US)
  Receive Date: 20241106
  Receipt Date: 20241106
  Transmission Date: 20250114
  Serious: Yes (Hospitalization)
  Sender: EISAI
  Company Number: US-Eisai-EC-2024-177969

PATIENT
  Age: 90 Year
  Sex: Female

DRUGS (10)
  1. LEQEMBI [Suspect]
     Active Substance: LECANEMAB-IRMB
     Indication: Dementia Alzheimer^s type
     Route: 042
     Dates: start: 20240820, end: 202409
  2. LEQEMBI [Suspect]
     Active Substance: LECANEMAB-IRMB
     Route: 042
     Dates: start: 20241008, end: 20241008
  3. ASPIRIN [Concomitant]
     Active Substance: ASPIRIN
  4. ALLOPURINOL [Concomitant]
     Active Substance: ALLOPURINOL
  5. DONEPEZIL [Concomitant]
     Active Substance: DONEPEZIL
  6. FAMOTIDINE [Concomitant]
     Active Substance: FAMOTIDINE
  7. METOPROLOL [Concomitant]
     Active Substance: METOPROLOL
  8. PRAVASTATIN [Concomitant]
     Active Substance: PRAVASTATIN
  9. QUETIAPINE [Concomitant]
     Active Substance: QUETIAPINE
  10. TRIAMTERENE AND HYDROCHLOROTHIAZIDE [Concomitant]
     Active Substance: HYDROCHLOROTHIAZIDE\TRIAMTERENE

REACTIONS (2)
  - Amyloid related imaging abnormality-oedema/effusion [Not Recovered/Not Resolved]
  - Amyloid related imaging abnormality-microhaemorrhages and haemosiderin deposits [Not Recovered/Not Resolved]

NARRATIVE: CASE EVENT DATE: 20241015
